FAERS Safety Report 19287908 (Version 1)
Quarter: 2021Q2

REPORT INFORMATION
  Report Type: Spontaneous
  Country: US (occurrence: US)
  Receive Date: 20210521
  Receipt Date: 20210521
  Transmission Date: 20210717
  Serious: Yes (Other)
  Sender: FDA-Public Use
  Company Number: US-ROCHE-2828155

PATIENT
  Sex: Male
  Weight: 81.72 kg

DRUGS (3)
  1. VALIUM [Suspect]
     Active Substance: DIAZEPAM
     Indication: SLEEP DISORDER
     Route: 065
  2. RITUXAN [Suspect]
     Active Substance: RITUXIMAB
     Indication: MULTIPLE SCLEROSIS
     Route: 065
     Dates: start: 2017
  3. OCREVUS [Suspect]
     Active Substance: OCRELIZUMAB
     Indication: PRIMARY PROGRESSIVE MULTIPLE SCLEROSIS
     Dosage: ONGOING: YES
     Route: 065
     Dates: start: 2019

REACTIONS (8)
  - Multiple sclerosis relapse [Unknown]
  - Muscular weakness [Unknown]
  - Gait disturbance [Unknown]
  - Joint lock [Unknown]
  - Insomnia [Unknown]
  - Drug ineffective [Unknown]
  - Off label use [Unknown]
  - Muscle spasms [Unknown]
